FAERS Safety Report 6864208-8 (Version None)
Quarter: 2010Q3

REPORT INFORMATION
  Report Type: 
  Country: None (occurrence: None)
  Receive Date: 20100721
  Receipt Date: 20080319
  Transmission Date: 20110219
  Serious: No
  Sender: FDA-Public Use
  Company Number: US-PFIZER INC-2008026372

PATIENT
  Sex: Female
  Weight: 59 kg

DRUGS (6)
  1. CHANTIX [Suspect]
     Indication: SMOKING CESSATION THERAPY
     Route: 048
     Dates: start: 20080224
  2. LIPITOR [Concomitant]
  3. TRICOR [Concomitant]
  4. SYNTHROID [Concomitant]
  5. CLIMARA [Concomitant]
     Route: 062
  6. CELEBREX [Concomitant]
     Indication: ARTHRITIS

REACTIONS (2)
  - FLATULENCE [None]
  - HYPERSOMNIA [None]
